FAERS Safety Report 4555706-0 (Version None)
Quarter: 2005Q1

REPORT INFORMATION
  Report Type: 
  Country: None (occurrence: None)
  Receive Date: 20050111
  Receipt Date: 20041012
  Transmission Date: 20050727
  Serious: No
  Sender: FDA-Public Use
  Company Number: 2004S1000224

PATIENT
  Age: 47 Year
  Sex: Male
  Weight: 131.8 kg

DRUGS (3)
  1. CUBICIN [Suspect]
     Indication: APPENDICITIS PERFORATED
     Dosage: 500 MG;Q24H;IV
     Route: 042
     Dates: start: 20041005
  2. ERTAPENEM [Concomitant]
  3. VICODIN [Concomitant]

REACTIONS (1)
  - VISUAL DISTURBANCE [None]
